FAERS Safety Report 8984722 (Version 1)
Quarter: 2012Q4

REPORT INFORMATION
  Report Type: Spontaneous
  Country: US (occurrence: None)
  Receive Date: 20121217
  Receipt Date: 20121217
  Transmission Date: 20130627
  Serious: Yes (Other)
  Sender: FDA-Public Use
  Company Number: 7146619

PATIENT
  Age: 33 Year
  Sex: Female

DRUGS (2)
  1. LEVOTHYROXINE [Suspect]
     Indication: HYPOTHYROIDISM
  2. LEVOTHYROXINE [Suspect]
     Indication: HASHIMOTO^S THYROIDITIS

REACTIONS (2)
  - Hyperthyroidism [None]
  - Accidental overdose [None]
